FAERS Safety Report 21605708 (Version 3)
Quarter: 2023Q1

REPORT INFORMATION
  Report Type: Report from Study
  Country: US (occurrence: US)
  Receive Date: 20221116
  Receipt Date: 20230208
  Transmission Date: 20230418
  Serious: Yes (Other)
  Sender: FDA-Public Use
  Company Number: US-ABBVIE-4166591

PATIENT
  Sex: Female

DRUGS (1)
  1. HUMIRA [Suspect]
     Active Substance: ADALIMUMAB
     Indication: Colitis ulcerative
     Dosage: CITRATE FREE
     Route: 058
     Dates: start: 20210413

REACTIONS (6)
  - Anal fistula infection [Unknown]
  - Osteomyelitis [Recovered/Resolved]
  - Medical device removal [Unknown]
  - Infected fistula [Unknown]
  - Inflammation [Recovering/Resolving]
  - Post procedural discharge [Unknown]
